FAERS Safety Report 24205829 (Version 1)
Quarter: 2024Q3

REPORT INFORMATION
  Report Type: Report from Study
  Country: US (occurrence: US)
  Receive Date: 20240813
  Receipt Date: 20240813
  Transmission Date: 20241016
  Serious: Yes (Other)
  Sender: ALNYLAM PHARMACEUTICALS
  Company Number: US-ALNYLAM PHARMACEUTICALS, INC.-ALN-2024-004452

PATIENT

DRUGS (2)
  1. OXLUMO [Suspect]
     Active Substance: LUMASIRAN
     Indication: Product used for unknown indication
     Dosage: UNK (94.5 MG/0.5 ML VIAL)
     Route: 065
  2. OXLUMO [Suspect]
     Active Substance: LUMASIRAN
     Dosage: 1.5 MILLILITER (94.5 MG/0.5 ML VIAL), Q3M
     Route: 058
     Dates: start: 20240801, end: 20240801

REACTIONS (4)
  - Pneumonia [Unknown]
  - Dialysis [Not Recovered/Not Resolved]
  - Limb injury [Unknown]
  - Overdose [Unknown]

NARRATIVE: CASE EVENT DATE: 20240801
